FAERS Safety Report 4999294-3 (Version None)
Quarter: 2006Q2

REPORT INFORMATION
  Report Type: 
  Country: None (occurrence: None)
  Receive Date: 20060510
  Receipt Date: 20060510
  Transmission Date: 20061013
  Serious: Yes (Death)
  Sender: FDA-Public Use
  Company Number: None

PATIENT
  Age: 39 Year
  Sex: Male
  Weight: 70.3075 kg

DRUGS (3)
  1. AMBIEN [Suspect]
     Indication: INNER EAR DISORDER
     Dates: start: 20050708, end: 20050710
  2. AMBIEN [Suspect]
     Indication: INSOMNIA
     Dates: start: 20050708, end: 20050710
  3. AMBIEN [Suspect]
     Indication: SLEEP DISORDER
     Dates: start: 20050708, end: 20050710

REACTIONS (7)
  - AMNESIA [None]
  - COMPLETED SUICIDE [None]
  - DISTURBANCE IN ATTENTION [None]
  - FEELING ABNORMAL [None]
  - GUN SHOT WOUND [None]
  - POOR QUALITY SLEEP [None]
  - SLEEP WALKING [None]
